FAERS Safety Report 8143610-0 (Version None)
Quarter: 2012Q1

REPORT INFORMATION
  Report Type: 
  Country: None (occurrence: None)
  Receive Date: 20120217
  Receipt Date: 20111223
  Transmission Date: 20120608
  Serious: No
  Sender: FDA-Public Use
  Company Number: US-GLAXOSMITHKLINE-A0959227A

PATIENT
  Age: 60 Year
  Sex: Male

DRUGS (7)
  1. PRAVASTATIN [Concomitant]
  2. SYNTHROID [Concomitant]
  3. VOTRIENT [Suspect]
     Indication: THYROID CANCER
     Dosage: 800MG PER DAY
     Route: 048
     Dates: start: 20110101
  4. FLOMAX [Concomitant]
  5. NEXAVAR [Concomitant]
  6. ASPIRIN [Concomitant]
  7. UNSPECIFIED MEDICATION [Concomitant]
     Indication: PROSTATIC DISORDER

REACTIONS (5)
  - AGEUSIA [None]
  - BURNING SENSATION [None]
  - PRURITUS [None]
  - SKIN EXFOLIATION [None]
  - BLOOD PRESSURE INCREASED [None]
